FAERS Safety Report 4280305-8 (Version None)
Quarter: 2004Q1

REPORT INFORMATION
  Report Type: 
  Country: None (occurrence: None)
  Receive Date: 20040126
  Receipt Date: 20040112
  Transmission Date: 20041129
  Serious: Yes (Hospitalization)
  Sender: FDA-Public Use
  Company Number: 2004S1000022

PATIENT
  Age: 78 Year
  Sex: Female
  Weight: 100 kg

DRUGS (1)
  1. CUBICIN [Suspect]
     Indication: STAPHYLOCOCCAL BACTERAEMIA
     Dosage: 400 MG; QD; IV
     Route: 042
     Dates: start: 20031101, end: 20031222

REACTIONS (4)
  - BACTERAEMIA [None]
  - BLOOD CREATININE INCREASED [None]
  - CEREBROVASCULAR ACCIDENT [None]
  - CONJUNCTIVAL HAEMORRHAGE [None]
